FAERS Safety Report 5394105-9 (Version None)
Quarter: 2007Q3

REPORT INFORMATION
  Report Type: 
  Country: None (occurrence: None)
  Receive Date: 20070723
  Receipt Date: 20070323
  Transmission Date: 20080115
  Serious: No
  Sender: FDA-Public Use
  Company Number: A0643374A

PATIENT
  Age: 82 Year
  Sex: Female

DRUGS (10)
  1. AVANDIA [Suspect]
     Dosage: 4MG PER DAY
     Route: 048
     Dates: start: 20060202
  2. GLIPIZIDE [Concomitant]
  3. CENTRUM MULTIVITAMIN [Concomitant]
  4. ASPIRIN [Concomitant]
  5. TOPROL-XL [Concomitant]
  6. LOVASTATIN [Concomitant]
  7. LEVOTHYROXINE SODIUM [Concomitant]
  8. LOTREL [Concomitant]
  9. AVAPRO [Concomitant]
  10. VERAPAMIL [Concomitant]

REACTIONS (3)
  - BLOOD GLUCOSE DECREASED [None]
  - BLOOD GLUCOSE INCREASED [None]
  - DRUG INEFFECTIVE [None]
